FAERS Safety Report 6636004-8 (Version None)
Quarter: 2010Q1

REPORT INFORMATION
  Report Type: 
  Country: None (occurrence: None)
  Receive Date: 20100309
  Receipt Date: 20100223
  Transmission Date: 20100710
  Serious: Yes (Hospitalization)
  Sender: FDA-Public Use
  Company Number: 2010EU000657

PATIENT
  Sex: Female

DRUGS (2)
  1. TACROLIMUS [Suspect]
     Indication: DERMATITIS ATOPIC
     Dates: start: 20080401
  2. PIMECROLIMUS (PIMECROLUMUS, PIMECROLIMUS) [Concomitant]

REACTIONS (1)
  - HYPERVENTILATION [None]
